FAERS Safety Report 24318667 (Version 2)
Quarter: 2024Q3

REPORT INFORMATION
  Report Type: Report from Study
  Country: CN (occurrence: CN)
  Receive Date: 20240913
  Receipt Date: 20240916
  Transmission Date: 20241017
  Serious: Yes (Life-Threatening, Other)
  Sender: ASTELLAS
  Company Number: CN-GILEAD-2024-0683988

PATIENT
  Age: 5 Year
  Sex: Female
  Weight: 17 kg

DRUGS (5)
  1. AMPHOTERICIN B [Suspect]
     Active Substance: AMPHOTERICIN B
     Indication: Visceral leishmaniasis
     Dosage: 0.1 MG/KG (THE INITIAL DOSE OF L-AMB WAS 0.1 MG/KG)
     Route: 042
  2. AMPHOTERICIN B [Suspect]
     Active Substance: AMPHOTERICIN B
     Dosage: GRADUALLY INCREASED DAILY BY 0.25-0.5 MG/KG UNTIL A MAINTENANCE DOSE OF 20 MG/DAY WAS REACHED
     Route: 042
  3. AMPHOTERICIN B [Suspect]
     Active Substance: AMPHOTERICIN B
     Dosage: 0.25 -0.5 MG/KG EVERY DAY FROM THE 2ND DAY TO THE MAINTENANCE DOSE OF 40 MG/D, WITH A TOTAL DOSE OF
     Route: 042
  4. SODIUM STIBOGLUCONATE [Concomitant]
     Active Substance: SODIUM STIBOGLUCONATE
     Indication: Product used for unknown indication
     Route: 065
  5. SODIUM STIBOGLUCONATE [Concomitant]
     Active Substance: SODIUM STIBOGLUCONATE
     Route: 065

REACTIONS (3)
  - Hypokalaemia [Recovered/Resolved]
  - Hypocalcaemia [Recovered/Resolved]
  - Off label use [Recovered/Resolved]
